FAERS Safety Report 6532861-4 (Version None)
Quarter: 2010Q1

REPORT INFORMATION
  Report Type: 
  Country: None (occurrence: None)
  Receive Date: 20100111
  Receipt Date: 20091214
  Transmission Date: 20100710
  Serious: No
  Sender: FDA-Public Use
  Company Number: US-BAYER-200917776BCC

PATIENT
  Sex: Female
  Weight: 74 kg

DRUGS (5)
  1. ALEVE [Suspect]
     Indication: BACK PAIN
     Route: 048
  2. SYNTHROID [Concomitant]
     Indication: HYPOTHYROIDISM
     Route: 065
  3. PRILOSEC [Concomitant]
     Route: 065
  4. PAXIL [Concomitant]
     Route: 065
  5. CELEBREX [Concomitant]
     Route: 065

REACTIONS (1)
  - CHEST PAIN [None]
